FAERS Safety Report 9846833 (Version 1)
Quarter: 2013Q4

REPORT INFORMATION
  Report Type: Spontaneous
  Country: US (occurrence: None)
  Receive Date: 20131219
  Receipt Date: 20131219
  Transmission Date: 20140711
  Serious: Yes (Hospitalization)
  Sender: FDA-Public Use
  Company Number: 163-20785-13073733

PATIENT
  Age: 58 Year
  Sex: Male

DRUGS (4)
  1. THALOMID (THALIDOMIDE) (50 MILLIGRAM, CAPSULES) [Suspect]
     Indication: PLASMA CELL MYELOMA
     Dosage: 2) 200MG, 1 IN 1 D, PO SEP/2006 - UNKNOWN THERAPY DATES
     Route: 048
     Dates: start: 200608
  2. PLAVIX (CLOPIDOGREL SULFATE) [Concomitant]
  3. ?ATENOLOL (ATENOLOL) [Concomitant]
  4. METFORMIN (METFORMIN) (UNKNOWN) [Concomitant]

REACTIONS (2)
  - Myocardial infarction [None]
  - Plasma cell myeloma [None]
